FAERS Safety Report 15742439 (Version 1)
Quarter: 2018Q4

REPORT INFORMATION
  Report Type: Spontaneous
  Country: US (occurrence: US)
  Receive Date: 20181219
  Receipt Date: 20181219
  Transmission Date: 20190205
  Serious: No
  Sender: FDA-Public Use
  Company Number: US-009507513-1812USA008017

PATIENT
  Age: 93 Year
  Sex: Female

DRUGS (14)
  1. DIFICID [Suspect]
     Active Substance: FIDAXOMICIN
     Indication: CLOSTRIDIUM DIFFICILE INFECTION
     Dosage: 200 MILLIGRAM, BID
     Route: 048
     Dates: start: 20181214
  2. OMEPRAZOLE. [Concomitant]
     Active Substance: OMEPRAZOLE
  3. AMLODIPINE [Concomitant]
     Active Substance: AMLODIPINE BESYLATE
  4. LEVOTHYROXINE SODIUM. [Concomitant]
     Active Substance: LEVOTHYROXINE SODIUM
  5. SIMVASTATIN. [Concomitant]
     Active Substance: SIMVASTATIN
  6. METOPROLOL. [Concomitant]
     Active Substance: METOPROLOL
  7. LORAZEPAM. [Concomitant]
     Active Substance: LORAZEPAM
  8. DIOVAN [Concomitant]
     Active Substance: VALSARTAN
  9. PLAVIX [Concomitant]
     Active Substance: CLOPIDOGREL BISULFATE
  10. ASPIRIN. [Concomitant]
     Active Substance: ASPIRIN
  11. GENTEAL (HYPROMELLOSE) [Concomitant]
  12. OCEAN SALINE NASAL SPRAY [Concomitant]
     Active Substance: SODIUM CHLORIDE
  13. EYLEA [Concomitant]
     Active Substance: AFLIBERCEPT
  14. VANCOMYCIN [Suspect]
     Active Substance: VANCOMYCIN
     Dosage: UNK

REACTIONS (4)
  - Dysphagia [Not Recovered/Not Resolved]
  - Dry mouth [Not Recovered/Not Resolved]
  - Oral pruritus [Not Recovered/Not Resolved]
  - Lip swelling [Not Recovered/Not Resolved]

NARRATIVE: CASE EVENT DATE: 20181214
